FAERS Safety Report 10588684 (Version 1)
Quarter: 2014Q4

REPORT INFORMATION
  Report Type: Spontaneous
  Country: US (occurrence: US)
  Receive Date: 20141117
  Receipt Date: 20141117
  Transmission Date: 20150529
  Serious: Yes (Hospitalization)
  Sender: FDA-Public Use
  Company Number: US-GLAXOSMITHKLINE-US2014GSK022596

PATIENT
  Sex: Male

DRUGS (23)
  1. ADVAIR DISKUS [Suspect]
     Active Substance: FLUTICASONE PROPIONATE\SALMETEROL XINAFOATE
     Indication: CHRONIC OBSTRUCTIVE PULMONARY DISEASE
     Dosage: 1 PUFF(S), BID
     Dates: start: 2011
  2. LEVETIRACETAM. [Concomitant]
     Active Substance: LEVETIRACETAM
  3. SPIRIVA [Concomitant]
     Active Substance: TIOTROPIUM BROMIDE MONOHYDRATE
  4. AMLODIPINE BESYLATE. [Concomitant]
     Active Substance: AMLODIPINE BESYLATE
  5. ASPIRIN (BABY) [Concomitant]
  6. COMBIVENT RESPIMAT [Concomitant]
     Active Substance: ALBUTEROL SULFATE\IPRATROPIUM BROMIDE
  7. COREG [Concomitant]
     Active Substance: CARVEDILOL
  8. CREON [Concomitant]
     Active Substance: PANCRELIPASE AMYLASE\PANCRELIPASE LIPASE\PANCRELIPASE PROTEASE
  9. HYDRALAZINE [Concomitant]
     Active Substance: HYDRALAZINE HYDROCHLORIDE
  10. FUROSEMIDE. [Concomitant]
     Active Substance: FUROSEMIDE
  11. ULORIC [Concomitant]
     Active Substance: FEBUXOSTAT
  12. ZOLPIDEM [Concomitant]
     Active Substance: ZOLPIDEM\ZOLPIDEM TARTRATE
  13. NOVOLOG [Concomitant]
     Active Substance: INSULIN ASPART
  14. OMEPRAZOLE. [Concomitant]
     Active Substance: OMEPRAZOLE
  15. NIZORAL SHAMPOO [Concomitant]
  16. DOXAZOSIN [Concomitant]
     Active Substance: DOXAZOSIN\DOXAZOSIN MESYLATE
  17. FLONASE [Concomitant]
     Active Substance: FLUTICASONE PROPIONATE
  18. XOLAIR [Concomitant]
     Active Substance: OMALIZUMAB
  19. OXYGEN. [Concomitant]
     Active Substance: OXYGEN
  20. LANTUS [Concomitant]
     Active Substance: INSULIN GLARGINE
  21. MIRALAX [Concomitant]
     Active Substance: POLYETHYLENE GLYCOL 3350
  22. COLCHICINE. [Concomitant]
     Active Substance: COLCHICINE
  23. FISH OIL [Concomitant]
     Active Substance: FISH OIL

REACTIONS (3)
  - Malaise [Unknown]
  - Dyspnoea [Unknown]
  - Drug administration error [Unknown]
